FAERS Safety Report 10057718 (Version 1)
Quarter: 2014Q2

REPORT INFORMATION
  Report Type: Spontaneous
  Country: US (occurrence: US)
  Receive Date: 20140404
  Receipt Date: 20140404
  Transmission Date: 20141212
  Serious: No
  Sender: FDA-Public Use
  Company Number: US-BIOGENIDEC-2014BI014346

PATIENT
  Age: 36 Year
  Sex: Female

DRUGS (12)
  1. TECFIDERA [Suspect]
     Indication: RELAPSING-REMITTING MULTIPLE SCLEROSIS
     Route: 048
     Dates: start: 201309, end: 201401
  2. TECFIDERA [Suspect]
     Indication: RELAPSING-REMITTING MULTIPLE SCLEROSIS
     Route: 048
     Dates: start: 201402
  3. FISH OIL [Concomitant]
  4. GLUCOSAMINE/CHONDROITIN [Concomitant]
  5. ALEVE [Concomitant]
  6. VITAMIN D [Concomitant]
  7. HYDROCODONE/ACETAMINOPHEN [Concomitant]
  8. TRAMADOL HCL [Concomitant]
  9. VITAMIN E [Concomitant]
  10. B-COMPLEX [Concomitant]
  11. ZANAFLEX [Concomitant]
  12. BACLOFEN [Concomitant]

REACTIONS (3)
  - Joint swelling [Not Recovered/Not Resolved]
  - Peripheral swelling [Not Recovered/Not Resolved]
  - Flushing [Recovered/Resolved]
